FAERS Safety Report 20233067 (Version 9)
Quarter: 2022Q3

REPORT INFORMATION
  Report Type: Report from Study
  Country: CA (occurrence: CA)
  Receive Date: 20211227
  Receipt Date: 20220919
  Transmission Date: 20221026
  Serious: Yes (Other)
  Sender: FDA-Public Use
  Company Number: CA-TAKEDA-2021TUS078401

PATIENT
  Age: 54 Year
  Sex: Female
  Weight: 40.8 kg

DRUGS (35)
  1. TEDUGLUTIDE [Suspect]
     Active Substance: TEDUGLUTIDE
     Indication: Short-bowel syndrome
     Dosage: 2.22 MILLIGRAM, QD
     Route: 065
     Dates: start: 20211201
  2. TEDUGLUTIDE [Suspect]
     Active Substance: TEDUGLUTIDE
     Indication: Short-bowel syndrome
     Dosage: 2.22 MILLIGRAM, QD
     Route: 065
     Dates: start: 20211201
  3. TEDUGLUTIDE [Suspect]
     Active Substance: TEDUGLUTIDE
     Indication: Short-bowel syndrome
     Dosage: 2.22 MILLIGRAM, QD
     Route: 065
     Dates: start: 20211201
  4. TEDUGLUTIDE [Suspect]
     Active Substance: TEDUGLUTIDE
     Indication: Short-bowel syndrome
     Dosage: 2.22 MILLIGRAM, QD
     Route: 065
     Dates: start: 20211201
  5. TEDUGLUTIDE [Suspect]
     Active Substance: TEDUGLUTIDE
     Indication: Crohn^s disease
     Dosage: 2.22 MILLIGRAM, QD
     Route: 065
     Dates: start: 20211201
  6. TEDUGLUTIDE [Suspect]
     Active Substance: TEDUGLUTIDE
     Indication: Crohn^s disease
     Dosage: 2.22 MILLIGRAM, QD
     Route: 065
     Dates: start: 20211201
  7. TEDUGLUTIDE [Suspect]
     Active Substance: TEDUGLUTIDE
     Indication: Crohn^s disease
     Dosage: 2.22 MILLIGRAM, QD
     Route: 065
     Dates: start: 20211201
  8. TEDUGLUTIDE [Suspect]
     Active Substance: TEDUGLUTIDE
     Indication: Crohn^s disease
     Dosage: 2.22 MILLIGRAM, QD
     Route: 065
     Dates: start: 20211201
  9. TEDUGLUTIDE [Suspect]
     Active Substance: TEDUGLUTIDE
     Dosage: 2.22 MILLIGRAM, QD
     Route: 050
     Dates: start: 20211201
  10. TEDUGLUTIDE [Suspect]
     Active Substance: TEDUGLUTIDE
     Dosage: 2.22 MILLIGRAM, QD
     Route: 050
     Dates: start: 20211201
  11. TEDUGLUTIDE [Suspect]
     Active Substance: TEDUGLUTIDE
     Dosage: 2.22 MILLIGRAM, QD
     Route: 050
     Dates: start: 20211201
  12. TEDUGLUTIDE [Suspect]
     Active Substance: TEDUGLUTIDE
     Dosage: 2.22 MILLIGRAM, QD
     Route: 050
     Dates: start: 20211201
  13. TEDUGLUTIDE [Suspect]
     Active Substance: TEDUGLUTIDE
     Dosage: 2.22 MILLIGRAM, QD
     Route: 058
     Dates: start: 20211201
  14. TEDUGLUTIDE [Suspect]
     Active Substance: TEDUGLUTIDE
     Dosage: 2.22 MILLIGRAM, QD
     Route: 058
     Dates: start: 20211201
  15. TEDUGLUTIDE [Suspect]
     Active Substance: TEDUGLUTIDE
     Dosage: 2.22 MILLIGRAM, QD
     Route: 058
     Dates: start: 20211201
  16. TEDUGLUTIDE [Suspect]
     Active Substance: TEDUGLUTIDE
     Dosage: 2.22 MILLIGRAM, QD
     Route: 058
     Dates: start: 20211201
  17. TEDUGLUTIDE [Suspect]
     Active Substance: TEDUGLUTIDE
     Dosage: 0.05 MILLIGRAM/KILOGRAM, QD
     Route: 058
     Dates: start: 202201
  18. TEDUGLUTIDE [Suspect]
     Active Substance: TEDUGLUTIDE
     Dosage: 0.05 MILLIGRAM/KILOGRAM, QD
     Route: 058
     Dates: start: 202201
  19. TEDUGLUTIDE [Suspect]
     Active Substance: TEDUGLUTIDE
     Dosage: 0.05 MILLIGRAM/KILOGRAM, QD
     Route: 058
     Dates: start: 202201
  20. TEDUGLUTIDE [Suspect]
     Active Substance: TEDUGLUTIDE
     Dosage: 0.05 MILLIGRAM/KILOGRAM, QD
     Route: 058
     Dates: start: 202201
  21. PREDNISONE [Concomitant]
     Active Substance: PREDNISONE
     Dosage: 10 MILLIGRAM, QD
     Route: 065
  22. HYDROMORPHONE [Concomitant]
     Active Substance: HYDROMORPHONE
     Dosage: 40 MILLIGRAM
     Route: 065
  23. STELARA [Concomitant]
     Active Substance: USTEKINUMAB
     Dosage: UNK, Q8WEEKS
     Route: 065
  24. TPN [Concomitant]
     Active Substance: AMINO ACIDS\DEXTROSE\ELECTROLYTES NOS\SOYBEAN OIL
     Dosage: 2500 MILLILITER, QD
     Route: 065
  25. TPN [Concomitant]
     Active Substance: AMINO ACIDS\DEXTROSE\ELECTROLYTES NOS\SOYBEAN OIL
     Dosage: 2000 MILLILITER, QD
     Route: 065
     Dates: start: 20220610
  26. TPN [Concomitant]
     Active Substance: AMINO ACIDS\DEXTROSE\ELECTROLYTES NOS\SOYBEAN OIL
     Dosage: 2300 MILLILITER, QD
     Route: 065
     Dates: start: 20220330
  27. GABAPENTIN [Concomitant]
     Active Substance: GABAPENTIN
     Dosage: 900 MILLIGRAM, QD
     Route: 065
  28. EFFEXOR [Concomitant]
     Active Substance: VENLAFAXINE HYDROCHLORIDE
     Dosage: 375 MILLIGRAM, QD
     Route: 065
  29. PANTOPRAZOLE SODIUM [Concomitant]
     Active Substance: PANTOPRAZOLE SODIUM
     Dosage: 80 MILLIGRAM, QD
     Route: 065
  30. SYNTHROID [Concomitant]
     Active Substance: LEVOTHYROXINE SODIUM
     Dosage: 0.05 MILLIGRAM, QD
     Route: 065
  31. HYDROXYZINE [Concomitant]
     Active Substance: HYDROXYZINE HYDROCHLORIDE
     Dosage: 10 MILLIGRAM, BID
     Route: 065
  32. WELLBUTRIN [Concomitant]
     Active Substance: BUPROPION HYDROCHLORIDE
     Dosage: 150 MILLIGRAM, QD
     Route: 065
  33. LOMOTIL [Concomitant]
     Active Substance: ATROPINE SULFATE\DIPHENOXYLATE HYDROCHLORIDE
     Dosage: 50 MILLIGRAM, QID
     Route: 065
  34. SODIUM CHLORIDE [Concomitant]
     Active Substance: SODIUM CHLORIDE
     Dosage: 1000 MILLILITER, 2/WEEK
     Route: 065
  35. TINZAPARIN [Concomitant]
     Active Substance: TINZAPARIN
     Dosage: UNK UNK, QD
     Route: 065

REACTIONS (19)
  - Respiratory tract congestion [Not Recovered/Not Resolved]
  - Muscle spasms [Recovered/Resolved]
  - Diarrhoea [Recovering/Resolving]
  - Faeces pale [Recovering/Resolving]
  - Middle insomnia [Recovering/Resolving]
  - Faecal volume decreased [Recovering/Resolving]
  - Nocturia [Unknown]
  - Lower respiratory tract infection [Unknown]
  - Increased appetite [Recovered/Resolved]
  - Gastrointestinal pain [Unknown]
  - Stress [Unknown]
  - Hypophagia [Recovering/Resolving]
  - Abdominal pain [Recovered/Resolved]
  - Weight decreased [Unknown]
  - Faeces hard [Unknown]
  - Faeces discoloured [Unknown]
  - Full blood count increased [Unknown]
  - Injection site bruising [Unknown]
  - Weight abnormal [Unknown]
